FAERS Safety Report 5646465-9 (Version None)
Quarter: 2008Q1

REPORT INFORMATION
  Report Type: 
  Country: None (occurrence: None)
  Receive Date: 20080303
  Receipt Date: 20080228
  Transmission Date: 20080703
  Serious: Yes (Hospitalization)
  Sender: FDA-Public Use
  Company Number: DE-BRISTOL-MYERS SQUIBB COMPANY-14075295

PATIENT
  Age: 5 Decade
  Sex: Female

DRUGS (6)
  1. CARBOPLATIN [Suspect]
     Indication: NEOPLASM MALIGNANT
     Dosage: INTERRUPTED ON 04 FEB 2008
     Route: 042
     Dates: start: 20080104
  2. TOPOTECAN HCL [Suspect]
     Indication: NEOPLASM MALIGNANT
     Dosage: 4.2 RECEIVED ON DAYS 1-3 FROM 02-JAN-08,INTERRUPTED ON 04 JAN 2008
     Route: 042
     Dates: start: 20080102
  3. THEOPHYLLINE [Concomitant]
  4. SIMVASTATIN [Concomitant]
  5. CARBAMAZEPINE [Concomitant]
  6. LEVOTHYROXINE SODIUM [Concomitant]

REACTIONS (1)
  - INFECTION [None]
